FAERS Safety Report 16424500 (Version 1)
Quarter: 2019Q2

REPORT INFORMATION
  Report Type: Report from Study
  Country: CO (occurrence: CO)
  Receive Date: 20190613
  Receipt Date: 20190613
  Transmission Date: 20190711
  Serious: Yes (Hospitalization)
  Sender: FDA-Public Use
  Company Number: CO-BAYER-2019-111630

PATIENT
  Age: 37 Year
  Sex: Male

DRUGS (7)
  1. HALOPERIDOL. [Concomitant]
     Active Substance: HALOPERIDOL
     Dosage: UNK
  2. ADEMPAS [Suspect]
     Active Substance: RIOCIGUAT
     Dosage: 2.5 MG, Q8HR
     Dates: start: 20160906
  3. ADEMPAS [Suspect]
     Active Substance: RIOCIGUAT
     Dosage: UNK
  4. CARVEDILOL. [Concomitant]
     Active Substance: CARVEDILOL
     Indication: HYPERTENSION
     Dosage: UNK
  5. OXYTOCIN. [Concomitant]
     Active Substance: OXYTOCIN
     Dosage: UNK
  6. XARELTO [Suspect]
     Active Substance: RIVAROXABAN
     Dosage: 20 MG, QD
  7. HYDROXYZINE [Concomitant]
     Active Substance: HYDROXYZINE HYDROCHLORIDE
     Dosage: UNK

REACTIONS (7)
  - Mouth haemorrhage [None]
  - Respiratory distress [None]
  - Product dose omission [Not Recovered/Not Resolved]
  - Choking [None]
  - Haemoptysis [None]
  - Epistaxis [None]
  - Product availability issue [None]

NARRATIVE: CASE EVENT DATE: 20190523
